FAERS Safety Report 6748514-3 (Version None)
Quarter: 2010Q2

REPORT INFORMATION
  Report Type: 
  Country: None (occurrence: None)
  Receive Date: 20100526
  Receipt Date: 20100510
  Transmission Date: 20101027
  Serious: No
  Sender: FDA-Public Use
  Company Number: 2010-00448

PATIENT
  Age: 62 Year
  Sex: Female
  Weight: 52.1637 kg

DRUGS (2)
  1. ZICAM COLD REMEDY ZAVORS [Suspect]
     Dosage: TID X 1 DAY
     Dates: start: 20100507, end: 20100508
  2. BONIVA [Concomitant]

REACTIONS (2)
  - AGEUSIA [None]
  - ANOSMIA [None]
